FAERS Safety Report 16124790 (Version 1)
Quarter: 2019Q1

REPORT INFORMATION
  Report Type: Spontaneous
  Country: US (occurrence: US)
  Receive Date: 20190327
  Receipt Date: 20190327
  Transmission Date: 20190418
  Serious: Yes (Hospitalization, Other)
  Sender: FDA-Public Use
  Company Number: US-ASTRAZENECA-2019SE46231

PATIENT
  Age: 68 Year
  Sex: Female

DRUGS (24)
  1. PREDNISONE. [Concomitant]
     Active Substance: PREDNISONE
  2. ANASTROZOLE. [Suspect]
     Active Substance: ANASTROZOLE
     Dosage: UNKNOWN
     Route: 048
     Dates: start: 201704, end: 201801
  3. FULVESTRANT. [Concomitant]
     Active Substance: FULVESTRANT
  4. VENTOLIN HFA [Concomitant]
     Active Substance: ALBUTEROL SULFATE
  5. CALTRATE 600 PLUS [Concomitant]
  6. LISINOPRIL. [Suspect]
     Active Substance: LISINOPRIL
     Route: 048
  7. IBRANCE [Suspect]
     Active Substance: PALBOCICLIB
     Route: 048
     Dates: start: 20180119, end: 201803
  8. CRIZOTINIB [Concomitant]
     Active Substance: CRIZOTINIB
  9. LEXAPRO [Concomitant]
     Active Substance: ESCITALOPRAM OXALATE
  10. EMLA [Concomitant]
     Active Substance: LIDOCAINE\PRILOCAINE
  11. COMPAZINE [Concomitant]
     Active Substance: PROCHLORPERAZINE MALEATE
  12. KEFLEX EQUIVALENT [Concomitant]
  13. VITAMIN D3 [Concomitant]
     Active Substance: CHOLECALCIFEROL
  14. VITAMIN C [Concomitant]
     Active Substance: ASCORBIC ACID
  15. EXEMESTANE. [Concomitant]
     Active Substance: EXEMESTANE
  16. SYMBICORT [Suspect]
     Active Substance: BUDESONIDE\FORMOTEROL FUMARATE DIHYDRATE
     Dosage: 80-4.5 INHALE 2 PUFFS INTO MOUTH/LUNGS 2 TIMES DAILY
     Route: 055
  17. FASLODEX [Suspect]
     Active Substance: FULVESTRANT
     Route: 030
     Dates: start: 20180119, end: 201803
  18. LORTAB [Concomitant]
     Active Substance: ACETAMINOPHEN\HYDROCODONE BITARTRATE
  19. MAGNESIUM OXIDE. [Concomitant]
     Active Substance: MAGNESIUM OXIDE
  20. ZOFRAN [Concomitant]
     Active Substance: ONDANSETRON HYDROCHLORIDE
  21. SPIRIVA [Concomitant]
     Active Substance: TIOTROPIUM BROMIDE MONOHYDRATE
  22. ANASTROZOLE. [Suspect]
     Active Substance: ANASTROZOLE
     Dosage: 1.0MG UNKNOWN
     Route: 048
     Dates: start: 20150127, end: 201511
  23. IMODIUM [Concomitant]
     Active Substance: LOPERAMIDE HYDROCHLORIDE
  24. ULTRAM [Concomitant]
     Active Substance: TRAMADOL HYDROCHLORIDE

REACTIONS (12)
  - Pancreatitis [Unknown]
  - Musculoskeletal chest pain [Unknown]
  - Hypoxia [Unknown]
  - Fatigue [Unknown]
  - Pneumonitis [Unknown]
  - Arthralgia [Unknown]
  - Respiratory failure [Unknown]
  - Dyspnoea [Unknown]
  - Cough [Unknown]
  - Nausea [Unknown]
  - Feeling abnormal [Unknown]
  - Malignant neoplasm progression [Unknown]

NARRATIVE: CASE EVENT DATE: 2015
